FAERS Safety Report 23263295 (Version 1)
Quarter: 2023Q4

REPORT INFORMATION
  Report Type: Spontaneous
  Country: US (occurrence: None)
  Receive Date: 20231205
  Receipt Date: 20231205
  Transmission Date: 20240110
  Serious: Yes (Hospitalization)
  Sender: FDA-Public Use
  Company Number: None

PATIENT
  Age: 74 Year
  Sex: Female

DRUGS (1)
  1. H.P. ACTHAR [Suspect]
     Active Substance: CORTICOTROPIN
     Dosage: OTHER QUANTITY : 80UNITS;?FREQUENCY : TWICE A WEEK;?

REACTIONS (3)
  - Fall [None]
  - Muscle rupture [None]
  - Therapy interrupted [None]
